FAERS Safety Report 10424560 (Version 3)
Quarter: 2014Q3

REPORT INFORMATION
  Report Type: Report from Study
  Country: US (occurrence: US)
  Receive Date: 20140902
  Receipt Date: 20140912
  Transmission Date: 20150326
  Serious: Yes (Other)
  Sender: FDA-Public Use
  Company Number: US-ABBVIE-14K-163-1276601-00

PATIENT
  Age: 32 Year
  Sex: Female
  Weight: 93.52 kg

DRUGS (2)
  1. XANAX [Concomitant]
     Active Substance: ALPRAZOLAM
     Indication: ANXIETY
  2. HUMIRA [Suspect]
     Active Substance: ADALIMUMAB
     Indication: HIDRADENITIS
     Dates: start: 201405, end: 20140811

REACTIONS (8)
  - Furuncle [Unknown]
  - Hidradenitis [Unknown]
  - Menstrual disorder [Recovered/Resolved]
  - Menstrual disorder [Recovered/Resolved]
  - Off label use [Not Recovered/Not Resolved]
  - Ventricular extrasystoles [Not Recovered/Not Resolved]
  - Breast discharge [Unknown]
  - Impaired healing [Unknown]

NARRATIVE: CASE EVENT DATE: 2014
